FAERS Safety Report 6361991-5 (Version None)
Quarter: 2009Q3

REPORT INFORMATION
  Report Type: 
  Country: None (occurrence: None)
  Receive Date: 20090916
  Receipt Date: 20090916
  Transmission Date: 20100115
  Serious: Yes (Other)
  Sender: FDA-Public Use
  Company Number: None

PATIENT
  Age: 37 Year
  Sex: Female
  Weight: 77.1115 kg

DRUGS (2)
  1. LEVOTHYROXINE SODIUM [Suspect]
     Indication: HYPOTHYROIDISM
     Dosage: 100MCG  1 DAY PO  REFILLED TWICE IN SIX MONTHS
     Route: 048
     Dates: start: 20080701, end: 20081002
  2. LEVOTHYROXINE SODIUM [Suspect]
     Indication: THYROID DISORDER
     Dosage: 100MCG  1 DAY PO  REFILLED TWICE IN SIX MONTHS
     Route: 048
     Dates: start: 20080701, end: 20081002

REACTIONS (13)
  - CONSTIPATION [None]
  - DRUG EXPOSURE DURING PREGNANCY [None]
  - EMOTIONAL DISORDER [None]
  - FATIGUE [None]
  - GOITRE [None]
  - MOVEMENT DISORDER [None]
  - NIGHTMARE [None]
  - PHARYNGEAL OEDEMA [None]
  - PRODUCT ODOUR ABNORMAL [None]
  - PRODUCT QUALITY ISSUE [None]
  - PRODUCT SUBSTITUTION ISSUE [None]
  - UNEVALUABLE EVENT [None]
  - WEIGHT INCREASED [None]
